FAERS Safety Report 6796760-5 (Version None)
Quarter: 2010Q2

REPORT INFORMATION
  Report Type: 
  Country: None (occurrence: None)
  Receive Date: 20100622
  Receipt Date: 20100609
  Transmission Date: 20101027
  Serious: Yes (Disabling, Other)
  Sender: FDA-Public Use
  Company Number: 1-22960086

PATIENT
  Sex: Male

DRUGS (1)
  1. ALLOPURINOL [Suspect]
     Indication: GOUT
     Dosage: ORAL
     Route: 048
     Dates: start: 20070401

REACTIONS (21)
  - ACTIVITIES OF DAILY LIVING IMPAIRED [None]
  - ALOPECIA [None]
  - ANHEDONIA [None]
  - ANXIETY [None]
  - EMOTIONAL DISTRESS [None]
  - HYPERSENSITIVITY [None]
  - MENTAL DISORDER [None]
  - MULTI-ORGAN DISORDER [None]
  - MULTIPLE INJURIES [None]
  - NAIL DISORDER [None]
  - PAIN [None]
  - PIGMENTATION DISORDER [None]
  - PRURITUS [None]
  - RASH [None]
  - SKIN DISCOLOURATION [None]
  - SKIN EXFOLIATION [None]
  - STEVENS-JOHNSON SYNDROME [None]
  - SWELLING [None]
  - TOXIC EPIDERMAL NECROLYSIS [None]
  - URTICARIA [None]
  - VISUAL IMPAIRMENT [None]
